FAERS Safety Report 5730791-9 (Version None)
Quarter: 2008Q2

REPORT INFORMATION
  Report Type: 
  Country: None (occurrence: None)
  Receive Date: 20080430
  Receipt Date: 20080128
  Transmission Date: 20081010
  Serious: No
  Sender: FDA-Public Use
  Company Number: 2006PV010349

PATIENT
  Age: 49 Year
  Sex: Female
  Weight: 87.9978 kg

DRUGS (10)
  1. SYMLIN [Suspect]
     Indication: TYPE 2 DIABETES MELLITUS
     Dosage: 120 MCG; SC, 60 MCG; SC, 30 MCG;TID;SC, 120 MCG; SC, 180 MCG; SC
     Route: 058
     Dates: start: 20060315, end: 20060317
  2. SYMLIN [Suspect]
     Indication: TYPE 2 DIABETES MELLITUS
     Dosage: 120 MCG; SC, 60 MCG; SC, 30 MCG;TID;SC, 120 MCG; SC, 180 MCG; SC
     Route: 058
     Dates: start: 20060318, end: 20060320
  3. SYMLIN [Suspect]
     Indication: TYPE 2 DIABETES MELLITUS
     Dosage: 120 MCG; SC, 60 MCG; SC, 30 MCG;TID;SC, 120 MCG; SC, 180 MCG; SC
     Route: 058
     Dates: start: 20050101
  4. SYMLIN [Suspect]
     Indication: TYPE 2 DIABETES MELLITUS
     Dosage: 120 MCG; SC, 60 MCG; SC, 30 MCG;TID;SC, 120 MCG; SC, 180 MCG; SC
     Route: 058
     Dates: start: 20060321
  5. BYETTA [Suspect]
     Indication: TYPE 2 DIABETES MELLITUS
     Dosage: SC
     Route: 058
  6. LANTUS [Concomitant]
  7. NOVOLOG [Concomitant]
  8. METFORMIN [Concomitant]
  9. ASPIRIN [Concomitant]
  10. NOVOLOG [Concomitant]

REACTIONS (5)
  - BLOOD GLUCOSE ABNORMAL [None]
  - BLOOD GLUCOSE DECREASED [None]
  - DRUG INEFFECTIVE [None]
  - INJECTION SITE BRUISING [None]
  - INJECTION SITE PAIN [None]
